FAERS Safety Report 6629520-6 (Version None)
Quarter: 2010Q1

REPORT INFORMATION
  Report Type: 
  Country: None (occurrence: None)
  Receive Date: 20100311
  Receipt Date: 20090723
  Transmission Date: 20100710
  Serious: No
  Sender: FDA-Public Use
  Company Number: US-BIOGENIDEC-2009BI022807

PATIENT
  Age: 53 Year
  Sex: Female

DRUGS (4)
  1. AVONEX [Suspect]
     Indication: MULTIPLE SCLEROSIS
     Route: 030
     Dates: start: 20090623, end: 20090630
  2. AVONEX [Suspect]
     Route: 030
     Dates: start: 20090630, end: 20090707
  3. AVONEX [Suspect]
     Route: 030
     Dates: start: 20090707
  4. ADVAIR DISKUS 100/50 [Concomitant]
     Indication: ASTHMA
     Dates: start: 19990101

REACTIONS (4)
  - DYSPNOEA [None]
  - GAIT DISTURBANCE [None]
  - MYALGIA [None]
  - NECK PAIN [None]
